FAERS Safety Report 7380240-2 (Version None)
Quarter: 2011Q1

REPORT INFORMATION
  Report Type: 
  Country: None (occurrence: None)
  Receive Date: 20110329
  Receipt Date: 20110321
  Transmission Date: 20110831
  Serious: Yes (Death)
  Sender: FDA-Public Use
  Company Number: US-PURDUE-USA-2010-0054438

PATIENT
  Sex: Female

DRUGS (3)
  1. OXYCODONE HCL [Concomitant]
     Indication: PAIN
     Dosage: UNK
  2. OXYCONTIN [Suspect]
     Indication: PAIN
     Dosage: 20 MG, UNK
     Dates: start: 20100101
  3. FENTANYL [Concomitant]
     Indication: PAIN

REACTIONS (4)
  - INTENTIONAL DRUG MISUSE [None]
  - PAIN [None]
  - NEOPLASM MALIGNANT [None]
  - MEDICATION RESIDUE [None]
